FAERS Safety Report 4695966-9 (Version None)
Quarter: 2005Q2

REPORT INFORMATION
  Report Type: 
  Country: None (occurrence: None)
  Receive Date: 20050621
  Receipt Date: 20050610
  Transmission Date: 20051028
  Serious: Yes (Other)
  Sender: FDA-Public Use
  Company Number: BR-JNJFOC-20050603887

PATIENT
  Age: 20 Year
  Sex: Female

DRUGS (2)
  1. MICRONOR [Suspect]
     Indication: CONTRACEPTION
     Route: 049
  2. NOVALGINA [Concomitant]
     Indication: HEADACHE
     Dosage: 2-3 TABLETS PER DAY

REACTIONS (3)
  - ABORTION SPONTANEOUS [None]
  - DRUG EXPOSURE DURING PREGNANCY [None]
  - PREGNANCY ON ORAL CONTRACEPTIVE [None]
